FAERS Safety Report 10186633 (Version 1)
Quarter: 2014Q2

REPORT INFORMATION
  Report Type: Report from Study
  Country: NL (occurrence: NL)
  Receive Date: 20140521
  Receipt Date: 20140521
  Transmission Date: 20141212
  Serious: Yes (Other)
  Sender: FDA-Public Use
  Company Number: NL-BAXTER-2014BAX023345

PATIENT
  Age: 61 Year
  Sex: Female

DRUGS (4)
  1. KIOVIG, 100 MG/ML, OPLOSSING VOOR INFUSIE  (30 G/300 ML) [Suspect]
     Indication: POLYNEUROPATHY
     Route: 065
     Dates: start: 20140417
  2. KIOVIG, 100 MG/ML, OPLOSSING VOOR INFUSIE  (30 G/300 ML) [Suspect]
     Indication: OFF LABEL USE
     Route: 065
     Dates: start: 20140507
  3. KIOVIG 100 MG/ML OPLOSSING VOOR INFUSIE (5 G/50 ML) [Suspect]
     Indication: POLYNEUROPATHY
     Route: 042
     Dates: start: 20140417
  4. KIOVIG 100 MG/ML OPLOSSING VOOR INFUSIE (5 G/50 ML) [Suspect]
     Indication: OFF LABEL USE
     Route: 042
     Dates: start: 20140507

REACTIONS (2)
  - Foot fracture [Recovering/Resolving]
  - Limb discomfort [Recovering/Resolving]
